FAERS Safety Report 6226368-1 (Version None)
Quarter: 2009Q2

REPORT INFORMATION
  Report Type: 
  Country: None (occurrence: None)
  Receive Date: 20090612
  Receipt Date: 20090602
  Transmission Date: 20091009
  Serious: Yes (Hospitalization)
  Sender: FDA-Public Use
  Company Number: US-JNJFOC-20090401048

PATIENT
  Sex: Female
  Weight: 44.91 kg

DRUGS (4)
  1. REMICADE [Suspect]
     Dosage: RECEIVED A TOTAL OF 2 INFUSIONS
     Route: 042
  2. REMICADE [Suspect]
     Indication: CROHN'S DISEASE
     Route: 042
  3. PENTASA [Concomitant]
     Indication: COLITIS
     Dosage: DOSE 500 (X2)
  4. PREDNISONE [Concomitant]
     Indication: COLITIS
     Dosage: PREDNISONE TAPER 90 MILIGRAMS TO 5 MILIGRAMS

REACTIONS (1)
  - DISSEMINATED TUBERCULOSIS [None]
